FAERS Safety Report 21646375 (Version 1)
Quarter: 2022Q4

REPORT INFORMATION
  Report Type: Spontaneous
  Country: US (occurrence: US)
  Receive Date: 20221126
  Receipt Date: 20221126
  Transmission Date: 20230112
  Serious: Yes (Death, Other)
  Sender: FDA-Public Use
  Company Number: US-AMGEN-USASP2022200078

PATIENT

DRUGS (3)
  1. BEVACIZUMAB [Suspect]
     Active Substance: BEVACIZUMAB
     Indication: Ovarian cancer
     Dosage: UNK
     Route: 065
  2. CARBOPLATIN [Concomitant]
     Active Substance: CARBOPLATIN
     Route: 040
  3. PACLITAXEL [Concomitant]
     Active Substance: PACLITAXEL
     Dosage: 175 MILLIGRAM

REACTIONS (20)
  - Ovarian cancer recurrent [Fatal]
  - Thrombocytopenia [Unknown]
  - Hypokalaemia [Unknown]
  - Syncope [Unknown]
  - Pulmonary embolism [Unknown]
  - Acute kidney injury [Unknown]
  - Leukopenia [Unknown]
  - Anaemia [Unknown]
  - Abdominal pain [Unknown]
  - Haematoma [Unknown]
  - Hypotension [Unknown]
  - Hypertension [Unknown]
  - Respiratory disorder [Unknown]
  - Leukocytosis [Unknown]
  - Hypocalcaemia [Unknown]
  - Diarrhoea [Unknown]
  - Chest pain [Unknown]
  - Wound infection [Unknown]
  - Urinary tract infection [Unknown]
  - Adverse event [Unknown]
